FAERS Safety Report 13153035 (Version 1)
Quarter: 2017Q1

REPORT INFORMATION
  Report Type: Spontaneous
  Country: CA (occurrence: CA)
  Receive Date: 20170126
  Receipt Date: 20170126
  Transmission Date: 20170428
  Serious: Yes (Life-Threatening, Hospitalization)
  Sender: FDA-Public Use
  Company Number: CA-TEVA-732633ACC

PATIENT
  Age: 14 Year
  Sex: Female
  Weight: 55 kg

DRUGS (1)
  1. TEVA-DIVALPROEX [Suspect]
     Active Substance: DIVALPROEX SODIUM
     Dosage: ONCE

REACTIONS (8)
  - Electrocardiogram QT prolonged [Recovered/Resolved]
  - Intentional product misuse [Recovered/Resolved]
  - Streptococcal bacteraemia [Recovered/Resolved]
  - Thrombocytopenia [Recovered/Resolved]
  - Intentional overdose [Recovered/Resolved]
  - Pancreatitis necrotising [Recovered/Resolved]
  - Hyperammonaemia [Recovered/Resolved]
  - Respiratory depression [Recovered/Resolved]
